FAERS Safety Report 5242517-6 (Version None)
Quarter: 2007Q1

REPORT INFORMATION
  Report Type: 
  Country: None (occurrence: None)
  Receive Date: 20070221
  Receipt Date: 20070207
  Transmission Date: 20070707
  Serious: No
  Sender: FDA-Public Use
  Company Number: GBWYE872218DEC06

PATIENT
  Sex: Male

DRUGS (2)
  1. ENBREL [Suspect]
     Indication: DRUG USE FOR UNKNOWN INDICATION
     Route: 058
     Dates: start: 20061208
  2. OXYCONTIN [Concomitant]
     Route: 048

REACTIONS (2)
  - PRURITUS GENERALISED [None]
  - RASH GENERALISED [None]
